FAERS Safety Report 23995494 (Version 2)
Quarter: 2024Q3

REPORT INFORMATION
  Report Type: Spontaneous
  Country: US (occurrence: US)
  Receive Date: 20240620
  Receipt Date: 20240705
  Transmission Date: 20241017
  Serious: Yes (Death, Hospitalization)
  Sender: KARYOPHARM THERAPEUTICS
  Company Number: US-KARYOPHARM-2024KPT001185

PATIENT

DRUGS (2)
  1. XPOVIO [Suspect]
     Active Substance: SELINEXOR
     Indication: Plasma cell myeloma
     Dosage: 80 MG, 2X/WEEK (DAYS 1, 3, 8, 15, 17, 22, 24 OF EACH 28-DAY CYCLE)
     Route: 048
     Dates: start: 202406, end: 202406
  2. VENCLEXTA [Concomitant]
     Active Substance: VENETOCLAX
     Indication: Plasma cell myeloma
     Dosage: 800 MG, QD
     Route: 048
     Dates: start: 2024, end: 202406

REACTIONS (4)
  - Neoplasm malignant [Fatal]
  - Feeling abnormal [Unknown]
  - Decreased appetite [Unknown]
  - Renal disorder [Unknown]

NARRATIVE: CASE EVENT DATE: 20240601
